FAERS Safety Report 4649609-0 (Version None)
Quarter: 2005Q2

REPORT INFORMATION
  Report Type: 
  Country: None (occurrence: None)
  Receive Date: 20050428
  Receipt Date: 20050428
  Transmission Date: 20051028
  Serious: Yes (Other)
  Sender: FDA-Public Use
  Company Number: None

PATIENT
  Age: 50 Year
  Sex: Male
  Weight: 58.514 kg

DRUGS (10)
  1. CETUXIMAB: 400MG/M2  W/1;  250 MG/M2;  BRISTOL MYERS SQU [Suspect]
     Indication: HEPATIC NEOPLASM MALIGNANT
     Dosage: 410 MG/M2  IV
     Route: 042
     Dates: start: 20050324
  2. CETUXIMAB: 400MG/M2  W/1;  250 MG/M2;  BRISTOL MYERS SQU [Suspect]
     Indication: HEPATIC NEOPLASM MALIGNANT
     Dosage: 410 MG/M2  IV
     Route: 042
     Dates: start: 20050331
  3. CETUXIMAB: 400MG/M2  W/1;  250 MG/M2;  BRISTOL MYERS SQU [Suspect]
     Indication: HEPATIC NEOPLASM MALIGNANT
     Dosage: 410 MG/M2  IV
     Route: 042
     Dates: start: 20050407
  4. CETUXIMAB: 400MG/M2  W/1;  250 MG/M2;  BRISTOL MYERS SQU [Suspect]
     Indication: HEPATIC NEOPLASM MALIGNANT
     Dosage: 410 MG/M2  IV
     Route: 042
     Dates: start: 20050414
  5. HERBAL TEA [Concomitant]
  6. M.V.I. [Concomitant]
  7. SARNA CREAM [Concomitant]
  8. CLEOCIN 1% [Concomitant]
  9. BEES WAX CREAM [Concomitant]
  10. HERBAL CREAM [Concomitant]

REACTIONS (1)
  - ASPARTATE AMINOTRANSFERASE INCREASED [None]
